FAERS Safety Report 23446112 (Version 1)
Quarter: 2024Q1

REPORT INFORMATION
  Report Type: Spontaneous
  Country: DE (occurrence: DE)
  Receive Date: 20240126
  Receipt Date: 20240126
  Transmission Date: 20240410
  Serious: Yes (Death, Life-Threatening, Other)
  Sender: FDA-Public Use
  Company Number: DE-MLMSERVICE-20240105-4759782-1

PATIENT
  Age: 69 Year

DRUGS (13)
  1. CISPLATIN [Suspect]
     Active Substance: CISPLATIN
     Indication: Cholangiocarcinoma
     Dosage: 25 MG/M2 ON DAY 1 AND 8
     Route: 065
     Dates: end: 201907
  2. FLUOROURACIL [Suspect]
     Active Substance: FLUOROURACIL
     Dosage: 3000 MG/M2 AS 48-H INFUSION 48-H INFUSION, EVERY 2 WEEKS FOR 12 CYCLES
     Route: 041
     Dates: end: 202002
  3. FLUOROURACIL [Suspect]
     Active Substance: FLUOROURACIL
     Dosage: 400 MG/M2 AS BOLUS EVERY 2 WEEKS FOR 12 CYCLES
     Route: 040
     Dates: end: 202002
  4. FLUOROURACIL [Suspect]
     Active Substance: FLUOROURACIL
     Dosage: 400 MG/M2 AS BOLUS
     Route: 040
  5. FLUOROURACIL [Suspect]
     Active Substance: FLUOROURACIL
     Indication: Cholangiocarcinoma
     Dosage: 2400 MG/M2 AS 48-H-INFUSION EVERY 2 WEEKS
     Route: 040
     Dates: end: 202003
  6. LEUCOVORIN [Suspect]
     Active Substance: LEUCOVORIN\LEUCOVORIN CALCIUM
     Indication: Cholangiocarcinoma
     Dosage: FOUR CYCLES OF  400 MG/M2 EVERY 2 WEEKS
     Route: 065
     Dates: end: 202003
  7. LEUCOVORIN [Suspect]
     Active Substance: LEUCOVORIN\LEUCOVORIN CALCIUM
     Dosage: 400 MG/M2 EVERY 2 WEEKS FOR 12 CYCLES
     Route: 065
     Dates: end: 202002
  8. GEMCITABINE [Suspect]
     Active Substance: GEMCITABINE
     Indication: Cholangiocarcinoma
     Dosage: 1000  MG/M2 ON DAY 1 AND 8
     Route: 065
     Dates: end: 201907
  9. IRINOTECAN [Suspect]
     Active Substance: IRINOTECAN
     Indication: Cholangiocarcinoma
     Dosage: FOUR CYCLES OF IRINOTECAN 180 MG/M2 EVERY 2 WEEKS
     Route: 065
     Dates: end: 202003
  10. OXALIPLATIN [Suspect]
     Active Substance: OXALIPLATIN
     Indication: Cholangiocarcinoma
     Dosage: 100  MG/M2 EVERY 2 WEEKS FOR 12 CYCLES
     Route: 065
     Dates: end: 202002
  11. PEMIGATINIB [Suspect]
     Active Substance: PEMIGATINIB
     Dosage: 9 MG/DAY FOR 2 WEEKS FOLLOWED BY 1-WEEKPAUSE
     Route: 065
     Dates: start: 2021, end: 2021
  12. PEMIGATINIB [Suspect]
     Active Substance: PEMIGATINIB
     Indication: Cholangiocarcinoma
     Dosage: 13.5 MG/DAY FOR 2 WEEKS, FOLLOWED BY 1-WEEK PAUSE.
     Route: 065
     Dates: start: 202005, end: 2021
  13. ERYTHROPOIETIN [Concomitant]
     Active Substance: ERYTHROPOIETIN
     Indication: Anaemia
     Dosage: UNKNOWN
     Route: 065

REACTIONS (3)
  - Pneumonia [Fatal]
  - Myelodysplastic syndrome [Fatal]
  - Acute myeloid leukaemia [Fatal]

NARRATIVE: CASE EVENT DATE: 20210801
